FAERS Safety Report 5661158-X (Version None)
Quarter: 2008Q1

REPORT INFORMATION
  Report Type: 
  Country: None (occurrence: None)
  Receive Date: 20080305
  Receipt Date: 20080220
  Transmission Date: 20080703
  Serious: Yes (Other)
  Sender: FDA-Public Use
  Company Number: 2008004759

PATIENT
  Sex: Male

DRUGS (1)
  1. LISTERINE (MENTHOL, METHYL SALICYLATE, EUCALYPTOL, THYMOL) [Suspect]
     Dosage: 2X250 ML BOTTLES, ORAL
     Route: 048
     Dates: start: 20080220

REACTIONS (2)
  - DYSARTHRIA [None]
  - INCOHERENT [None]
